FAERS Safety Report 16541154 (Version 1)
Quarter: 2019Q3

REPORT INFORMATION
  Report Type: Spontaneous
  Country: GB (occurrence: GB)
  Receive Date: 20190708
  Receipt Date: 20190708
  Transmission Date: 20191004
  Serious: Yes (Hospitalization, Other)
  Sender: FDA-Public Use
  Company Number: GB-JNJFOC-20190635566

PATIENT
  Age: 23 Year
  Sex: Female

DRUGS (1)
  1. REMICADE [Suspect]
     Active Substance: INFLIXIMAB
     Indication: COLITIS
     Route: 042
     Dates: start: 201802

REACTIONS (5)
  - Drug ineffective [Unknown]
  - Off label use [Unknown]
  - Product use in unapproved indication [Unknown]
  - Drug level below therapeutic [Unknown]
  - Cytomegalovirus colitis [Recovered/Resolved]

NARRATIVE: CASE EVENT DATE: 201802
